FAERS Safety Report 4319823-2 (Version None)
Quarter: 2004Q1

REPORT INFORMATION
  Report Type: 
  Country: None (occurrence: None)
  Receive Date: 20040316
  Receipt Date: 20040227
  Transmission Date: 20041129
  Serious: Yes (Other)
  Sender: FDA-Public Use
  Company Number: DSA_24060_2004

PATIENT
  Age: 51 Year
  Sex: Male

DRUGS (6)
  1. DILTIAZEM [Suspect]
     Indication: ANGINA PECTORIS
     Dosage: 200 MG Q DAY, FEW WEEKS
  2. CHLOROQUINE [Suspect]
     Indication: MALARIA PROPHYLAXIS
     Dosage: 300 MG QWK, FEW WEEKS
  3. PROGUANIL [Suspect]
     Indication: MALARIA PROPHYLAXIS
     Dosage: 200 MG Q DAY , A FEW EEKS
  4. ATORVASTATIN [Concomitant]
  5. INDOMETHACIN [Concomitant]
  6. ASPIRIN [Concomitant]

REACTIONS (4)
  - ATRIOVENTRICULAR BLOCK SECOND DEGREE [None]
  - DRUG INTERACTION [None]
  - DYSPNOEA [None]
  - HEART RATE IRREGULAR [None]
